FAERS Safety Report 4412578-2 (Version None)
Quarter: 2004Q2

REPORT INFORMATION
  Report Type: 
  Country: None (occurrence: None)
  Receive Date: 20040630
  Receipt Date: 20040409
  Transmission Date: 20050107
  Serious: No
  Sender: FDA-Public Use
  Company Number: 04P-163-0256835-00

PATIENT
  Sex: Female
  Weight: 54.4316 kg

DRUGS (7)
  1. HUMIRA [Suspect]
     Indication: RHEUMATOID ARTHRITIS
     Dosage: 0.8 ML, 4 IN 1 M, SUBCUTANEOUS
     Route: 058
     Dates: start: 20040213
  2. PREDNISONE [Concomitant]
  3. MOTRIN [Concomitant]
  4. METHOTREXATE [Concomitant]
  5. LEVOTHYROXINE SODIUM [Concomitant]
  6. MULTI-VITAMINS [Concomitant]
  7. IRON [Concomitant]

REACTIONS (1)
  - INJECTION SITE PAIN [None]
